FAERS Safety Report 6696755-6 (Version None)
Quarter: 2010Q2

REPORT INFORMATION
  Report Type: 
  Country: None (occurrence: None)
  Receive Date: 20100426
  Receipt Date: 20100414
  Transmission Date: 20101027
  Serious: Yes (Hospitalization)
  Sender: FDA-Public Use
  Company Number: US-ELI_LILLY_AND_COMPANY-US201004003827

PATIENT
  Sex: Female
  Weight: 75.283 kg

DRUGS (5)
  1. PEMETREXED [Suspect]
     Indication: NON-SMALL CELL LUNG CANCER
     Dosage: 500 MG/M2, OTHER
     Route: 042
     Dates: start: 20090917, end: 20100329
  2. CARBOPLATIN [Suspect]
     Indication: NON-SMALL CELL LUNG CANCER
     Dosage: 6 D/F, OTHER
     Route: 042
     Dates: start: 20090917, end: 20100329
  3. BEVACIZUMAB [Suspect]
     Indication: NON-SMALL CELL LUNG CANCER
     Dosage: 15 MG/KG, OTHER
     Route: 042
     Dates: start: 20090917, end: 20100329
  4. ADVIL LIQUI-GELS [Concomitant]
     Indication: PAIN
     Dosage: 600 MG, UNK
     Dates: start: 20070101
  5. TUSSIONEX [Concomitant]
     Indication: COUGH
     Route: 048
     Dates: start: 20090910

REACTIONS (1)
  - DEEP VEIN THROMBOSIS [None]
